FAERS Safety Report 17764260 (Version 3)
Quarter: 2020Q2

REPORT INFORMATION
  Report Type: Report from Study
  Country: US (occurrence: US)
  Receive Date: 20200511
  Receipt Date: 20200520
  Transmission Date: 20200714
  Serious: Yes (Death, Hospitalization, Other)
  Sender: FDA-Public Use
  Company Number: US-ROCHE-2594767

PATIENT
  Age: 84 Year
  Sex: Male
  Weight: 78 kg

DRUGS (66)
  1. LORAZEPAM. [Concomitant]
     Active Substance: LORAZEPAM
     Route: 065
     Dates: start: 20200418
  2. MORPHINE [Concomitant]
     Active Substance: MORPHINE
     Route: 042
     Dates: start: 20200420, end: 20200420
  3. MORPHINE [Concomitant]
     Active Substance: MORPHINE
     Route: 042
     Dates: start: 20200418, end: 20200420
  4. MORPHINE [Concomitant]
     Active Substance: MORPHINE
     Route: 042
     Dates: start: 20200418, end: 20200418
  5. ROCEPHIN [CEFTRIAXONE] [Concomitant]
     Route: 065
     Dates: start: 20200418, end: 20200420
  6. ROCEPHIN [CEFTRIAXONE] [Concomitant]
     Route: 065
     Dates: start: 20200406, end: 20200406
  7. LOVENOX [Concomitant]
     Active Substance: ENOXAPARIN SODIUM
     Route: 065
     Dates: start: 20200418, end: 20200420
  8. HALDOL [Concomitant]
     Active Substance: HALOPERIDOL
     Route: 065
     Dates: start: 20200419, end: 20200420
  9. LISINOPRIL. [Concomitant]
     Active Substance: LISINOPRIL
     Route: 065
     Dates: start: 20200418, end: 20200418
  10. MIRALAX [Concomitant]
     Active Substance: POLYETHYLENE GLYCOL 3350
     Route: 065
     Dates: start: 20200418, end: 20200419
  11. SENOKOT [Concomitant]
     Active Substance: SENNOSIDES
     Route: 065
     Dates: start: 20200418, end: 20200419
  12. ASPIRIN [ACETYLSALICYLIC ACID] [Concomitant]
     Active Substance: ASPIRIN
     Route: 048
     Dates: start: 20200417, end: 20200417
  13. MORPHINE [Concomitant]
     Active Substance: MORPHINE
     Route: 042
     Dates: start: 20200418, end: 20200419
  14. HALDOL [Concomitant]
     Active Substance: HALOPERIDOL
     Route: 065
     Dates: start: 20200420, end: 20200421
  15. FLUZONE HIGH-DOSE NOS [Concomitant]
     Active Substance: INFLUENZA A VIRUS A/CALIFORNIA/7/2009 X-179A (H1N1) ANTIGEN (FORMALDEHYDE INACTIVATED)\INFLUENZA A VIRUS A/VICTORIA/210/2009 X-187 (H3N2) ANTIGEN (FORMALDEHYDE INACTIVATED)\INFLUENZA B VIRUS B/BRISBANE/60/2008 ANTIGEN (FORMALDEHYDE INACTIVATED)
     Route: 030
     Dates: start: 20200418, end: 20200418
  16. SYNTHROID [Concomitant]
     Active Substance: LEVOTHYROXINE SODIUM
     Route: 065
     Dates: start: 20200408, end: 20200408
  17. ATIVAN [Concomitant]
     Active Substance: LORAZEPAM
     Dosage: 2 MG/ML
     Route: 065
     Dates: start: 20200419, end: 20200420
  18. RELISTOR [Concomitant]
     Active Substance: METHYLNALTREXONE BROMIDE
     Route: 058
     Dates: start: 20200419, end: 20200420
  19. MORPHINE SULPHATE [Concomitant]
     Active Substance: MORPHINE SULFATE
     Route: 065
     Dates: start: 20200420, end: 20200420
  20. SENOKOT [Concomitant]
     Active Substance: SENNOSIDES
     Route: 065
     Dates: start: 20200418, end: 20200420
  21. ONDANSETRON [Concomitant]
     Active Substance: ONDANSETRON
     Route: 065
     Dates: start: 20200302, end: 20200302
  22. ALOXI [Concomitant]
     Active Substance: PALONOSETRON HYDROCHLORIDE
     Route: 065
     Dates: start: 20200218, end: 20200218
  23. OXALIPLATIN. [Suspect]
     Active Substance: OXALIPLATIN
     Indication: ADENOCARCINOMA OF COLON
     Dosage: OVER 2 HOURS ON DAY 1
     Route: 042
  24. 5-FLUOROURACIL [FLUOROURACIL] [Suspect]
     Active Substance: FLUOROURACIL
     Indication: ADENOCARCINOMA OF COLON
     Dosage: ON DAY 1 FOLLOWED BY 2400MG/M2 IV OVER 46 HOURS DAYS 1-3
     Route: 040
  25. TYLENOL [Concomitant]
     Active Substance: ACETAMINOPHEN
     Route: 065
     Dates: start: 20200420
  26. ROBINUL [Concomitant]
     Active Substance: GLYCOPYRROLATE
     Route: 065
     Dates: start: 20200420, end: 20200420
  27. ROBINUL [Concomitant]
     Active Substance: GLYCOPYRROLATE
     Route: 065
     Dates: start: 20200418, end: 20200418
  28. ROXICODONE [Concomitant]
     Active Substance: OXYCODONE HYDROCHLORIDE
     Route: 048
     Dates: start: 20200418, end: 20200420
  29. DELTASONE [Concomitant]
     Active Substance: PREDNISONE
     Route: 065
     Dates: start: 20200418, end: 20200418
  30. DECADRON [Concomitant]
     Active Substance: DEXAMETHASONE
     Route: 065
     Dates: start: 20200218, end: 20200218
  31. MORPHINE [Concomitant]
     Active Substance: MORPHINE
     Route: 065
     Dates: start: 20200420, end: 20200421
  32. LOVENOX [Concomitant]
     Active Substance: ENOXAPARIN SODIUM
     Route: 065
     Dates: start: 20200418, end: 20200418
  33. ATIVAN [Concomitant]
     Active Substance: LORAZEPAM
     Route: 065
     Dates: start: 20200419, end: 20200420
  34. ATIVAN [Concomitant]
     Active Substance: LORAZEPAM
     Route: 065
     Dates: start: 20200420, end: 20200421
  35. MELATONIN [Concomitant]
     Active Substance: MELATONIN
     Route: 048
     Dates: start: 20200418, end: 20200420
  36. REGLAN [Concomitant]
     Active Substance: METOCLOPRAMIDE HYDROCHLORIDE
     Route: 042
     Dates: start: 20200418, end: 20200419
  37. AQUAPHOR [MINERAL WAX;PARAFFIN, LIQUID;PETROLATUM;WOOL ALCOHOLS] [Concomitant]
     Route: 065
     Dates: start: 20200420, end: 20200420
  38. TYLENOL [Concomitant]
     Active Substance: ACETAMINOPHEN
     Route: 065
     Dates: start: 20200418, end: 20200419
  39. MORPHINE [Concomitant]
     Active Substance: MORPHINE
     Route: 065
     Dates: start: 20200420, end: 20200420
  40. MORPHINE [Concomitant]
     Active Substance: MORPHINE
     Route: 042
     Dates: start: 20200420, end: 20200420
  41. SYNTHROID [Concomitant]
     Active Substance: LEVOTHYROXINE SODIUM
     Dosage: 75 MCG
     Route: 048
     Dates: start: 20200418, end: 20200419
  42. SOLU-MEDROL [Concomitant]
     Active Substance: METHYLPREDNISOLONE SODIUM SUCCINATE
     Route: 065
     Dates: start: 20200418, end: 20200420
  43. SODIUM CHLORIDE 0.9% [Concomitant]
     Active Substance: SODIUM CHLORIDE
     Route: 065
     Dates: start: 20200418, end: 20200418
  44. DECADRON [Concomitant]
     Active Substance: DEXAMETHASONE
     Route: 065
     Dates: start: 20200302, end: 20200302
  45. DECADRON [Concomitant]
     Active Substance: DEXAMETHASONE
     Route: 065
     Dates: start: 20200203, end: 20200203
  46. ATEZOLIZUMAB. [Suspect]
     Active Substance: ATEZOLIZUMAB
     Indication: ADENOCARCINOMA OF COLON
     Dosage: THE DATE OF LAST DOSE OF ATEZOLIZUMAB PRIOR TO EVENT ONSET: 02/MAR/2020.
     Route: 041
     Dates: start: 20191216
  47. MORPHINE [Concomitant]
     Active Substance: MORPHINE
     Route: 042
     Dates: start: 20200419, end: 20200419
  48. MORPHINE [Concomitant]
     Active Substance: MORPHINE
     Route: 065
     Dates: start: 20200420, end: 20200421
  49. VIBRAMYCIN [Concomitant]
     Active Substance: DOXYCYCLINE
     Route: 065
     Dates: start: 20200418, end: 20200420
  50. HALDOL [Concomitant]
     Active Substance: HALOPERIDOL
     Route: 065
     Dates: start: 20200420, end: 20200420
  51. SYNTHROID [Concomitant]
     Active Substance: LEVOTHYROXINE SODIUM
     Dosage: 75 MCG
     Route: 048
     Dates: start: 20200418, end: 20200419
  52. ATIVAN [Concomitant]
     Active Substance: LORAZEPAM
     Route: 065
     Dates: start: 20200419, end: 20200419
  53. MIRALAX [Concomitant]
     Active Substance: POLYETHYLENE GLYCOL 3350
     Route: 065
     Dates: start: 20200419, end: 20200419
  54. TYLENOL [Concomitant]
     Active Substance: ACETAMINOPHEN
     Route: 065
     Dates: start: 20200417, end: 20200417
  55. TYLENOL [Concomitant]
     Active Substance: ACETAMINOPHEN
     Route: 065
     Dates: start: 20200407, end: 20200407
  56. CINVANTI [Concomitant]
     Active Substance: APREPITANT
     Route: 065
     Dates: start: 20200218, end: 20200218
  57. ELOXATIN [Concomitant]
     Active Substance: OXALIPLATIN
     Route: 065
     Dates: start: 20200203, end: 20200203
  58. LEUCOVORIN CALCIUM. [Suspect]
     Active Substance: LEUCOVORIN CALCIUM
     Indication: ADENOCARCINOMA OF COLON
     Route: 042
  59. MORPHINE [Concomitant]
     Active Substance: MORPHINE
     Route: 042
     Dates: start: 20200419, end: 20200420
  60. TYLENOL [Concomitant]
     Active Substance: ACETAMINOPHEN
     Route: 065
     Dates: start: 20200418, end: 20200419
  61. ELOXATIN [Concomitant]
     Active Substance: OXALIPLATIN
     Route: 065
     Dates: start: 20200218, end: 20200218
  62. MORPHINE [Concomitant]
     Active Substance: MORPHINE
     Route: 065
     Dates: start: 20200418
  63. VIBRAMYCIN [Concomitant]
     Active Substance: DOXYCYCLINE
     Route: 065
     Dates: start: 20200406, end: 20200406
  64. ROBINUL [Concomitant]
     Active Substance: GLYCOPYRROLATE
     Route: 065
     Dates: start: 20200420, end: 20200421
  65. REGLAN [Concomitant]
     Active Substance: METOCLOPRAMIDE HYDROCHLORIDE
     Route: 042
     Dates: start: 20200418, end: 20200418
  66. FLOMAX [Concomitant]
     Active Substance: TAMSULOSIN HYDROCHLORIDE
     Route: 065
     Dates: start: 20200418, end: 20200420

REACTIONS (22)
  - Insomnia [Recovered/Resolved]
  - Weight decreased [Recovered/Resolved]
  - Anxiety [Recovered/Resolved]
  - Abdominal pain [Recovered/Resolved]
  - Blood alkaline phosphatase increased [Recovered/Resolved]
  - Nausea [Recovered/Resolved]
  - Back pain [Recovered/Resolved]
  - Paraesthesia [Recovered/Resolved]
  - Alanine aminotransferase increased [Recovered/Resolved]
  - Pneumonia [Fatal]
  - Erythema [Recovered/Resolved]
  - Dry skin [Recovered/Resolved]
  - COVID-19 [Unknown]
  - Fatigue [Not Recovered/Not Resolved]
  - Constipation [Recovered/Resolved]
  - Decreased appetite [Recovered/Resolved]
  - Gait disturbance [Recovered/Resolved]
  - Insomnia [Recovered/Resolved]
  - Hyponatraemia [Recovered/Resolved]
  - Pollakiuria [Recovered/Resolved]
  - Urinary tract infection [Recovered/Resolved]
  - Aspartate aminotransferase increased [Recovered/Resolved]

NARRATIVE: CASE EVENT DATE: 20191216
